FAERS Safety Report 5161959-0 (Version None)
Quarter: 2006Q4

REPORT INFORMATION
  Report Type: 
  Country: None (occurrence: None)
  Receive Date: 20061130
  Receipt Date: 20061122
  Transmission Date: 20070319
  Serious: Yes (Death, Other)
  Sender: FDA-Public Use
  Company Number: US-ELI_LILLY_AND_COMPANY-US200611004272

PATIENT
  Sex: Female

DRUGS (1)
  1. INSULIN [Suspect]
     Dosage: 80 U, DAILY (1/D)
     Dates: start: 19260101, end: 19730101

REACTIONS (4)
  - BLINDNESS [None]
  - CARDIAC ARREST [None]
  - CARDIAC DISORDER [None]
  - DIABETIC RETINOPATHY [None]
